FAERS Safety Report 6314281-0 (Version None)
Quarter: 2009Q3

REPORT INFORMATION
  Report Type: 
  Country: None (occurrence: None)
  Receive Date: 20090817
  Receipt Date: 20090806
  Transmission Date: 20100115
  Serious: Yes (Hospitalization)
  Sender: FDA-Public Use
  Company Number: 230484K09BRA

PATIENT
  Age: 44 Year
  Sex: Female

DRUGS (4)
  1. REBIF [Suspect]
     Indication: RELAPSING-REMITTING MULTIPLE SCLEROSIS
     Dosage: 44 MCG, 3 IN 1 WEEKS
     Dates: start: 20071025
  2. PAMELOR [Concomitant]
  3. LIORESAL [Concomitant]
  4. TEGRETOL [Concomitant]

REACTIONS (4)
  - BOWEL MOVEMENT IRREGULARITY [None]
  - GASTROINTESTINAL DISORDER [None]
  - HEADACHE [None]
  - MYALGIA [None]
